FAERS Safety Report 7709486-8 (Version None)
Quarter: 2011Q3

REPORT INFORMATION
  Report Type: 
  Country: None (occurrence: None)
  Receive Date: 20110825
  Receipt Date: 20110818
  Transmission Date: 20111222
  Serious: Yes (Hospitalization)
  Sender: FDA-Public Use
  Company Number: JP-ROCHE-626467

PATIENT
  Sex: Female

DRUGS (11)
  1. TOCILIZUMAB [Suspect]
     Route: 041
     Dates: start: 20090202, end: 20090202
  2. PROGRAF [Concomitant]
     Route: 048
  3. PREDNISOLONE [Concomitant]
     Route: 048
  4. TRICHLORMETHIAZIDE [Concomitant]
     Route: 048
  5. LASIX [Concomitant]
     Dosage: FORM: PERORAL AGENT
     Route: 048
  6. ARGAMATE [Concomitant]
     Dosage: FORM: JELLY
     Route: 048
  7. KREMEZIN [Concomitant]
     Dosage: FORM: MINUTE GRAIN
     Route: 048
  8. LANTUS [Concomitant]
     Route: 058
     Dates: start: 20090105
  9. EPOGIN S [Concomitant]
     Route: 042
     Dates: start: 20090113
  10. TOCILIZUMAB [Suspect]
     Indication: RHEUMATOID ARTHRITIS
     Route: 041
     Dates: start: 20090105, end: 20090105
  11. NOVORAPID [Concomitant]
     Route: 058
     Dates: start: 20090105

REACTIONS (1)
  - CARDIAC FAILURE [None]
